FAERS Safety Report 24957074 (Version 1)
Quarter: 2025Q1

REPORT INFORMATION
  Report Type: Spontaneous
  Country: US (occurrence: US)
  Receive Date: 20250211
  Receipt Date: 20250211
  Transmission Date: 20250408
  Serious: Yes (Other)
  Sender: APOLLO PHARMACEUTICALS
  Company Number: US-PROVEPHARM, INC.-2025-APO-000001

PATIENT

DRUGS (1)
  1. PIPERACILLIN AND TAZOBACTAM [Suspect]
     Active Substance: PIPERACILLIN SODIUM\TAZOBACTAM SODIUM
     Indication: Abscess
     Route: 065

REACTIONS (1)
  - Drug-induced liver injury [Recovered/Resolved]
